FAERS Safety Report 18591845 (Version 4)
Quarter: 2020Q4

REPORT INFORMATION
  Report Type: Spontaneous
  Country: US (occurrence: US)
  Receive Date: 20201208
  Receipt Date: 20201216
  Transmission Date: 20210114
  Serious: Yes (Other)
  Sender: FDA-Public Use
  Company Number: US-PFIZER INC-2020481460

PATIENT
  Age: 76 Year
  Sex: Male

DRUGS (2)
  1. VYNDAQEL [Suspect]
     Active Substance: TAFAMIDIS MEGLUMINE
     Indication: AMYLOIDOSIS
     Dosage: 80 MG, UNK
  2. ELIQUIS [Suspect]
     Active Substance: APIXABAN
     Dosage: UNK
     Route: 065

REACTIONS (15)
  - Aphasia [Unknown]
  - Off label use [Unknown]
  - Aortic valve incompetence [Unknown]
  - Lung opacity [Unknown]
  - N-terminal prohormone brain natriuretic peptide increased [Unknown]
  - Arteriovenous fistula [Unknown]
  - Pneumonia [Unknown]
  - Pleural effusion [Unknown]
  - Cerebral artery occlusion [Unknown]
  - Speech disorder [Recovering/Resolving]
  - Hemiparesis [Unknown]
  - Peripheral artery aneurysm [Unknown]
  - Hypotension [Unknown]
  - Memory impairment [Unknown]
  - Aortic dissection [Unknown]
